FAERS Safety Report 7381662-6 (Version None)
Quarter: 2011Q1

REPORT INFORMATION
  Report Type: 
  Country: None (occurrence: None)
  Receive Date: 20110329
  Receipt Date: 20101015
  Transmission Date: 20110831
  Serious: Yes (Hospitalization, Other)
  Sender: FDA-Public Use
  Company Number: US-BAYER-201021647NA

PATIENT
  Sex: Female
  Weight: 74.83 kg

DRUGS (7)
  1. YAZ [Suspect]
     Indication: CONTRACEPTION
     Dosage: AS USED DOSE: UNK
     Route: 048
     Dates: start: 20071201, end: 20090601
  2. ALEVE [Concomitant]
     Dosage: UNK UNK, PRN
  3. HYDROCODONE [HYDROCODONE] [Concomitant]
  4. ACYCLOVIR [Concomitant]
     Indication: DERMATITIS CONTACT
     Dosage: UNK
     Dates: start: 20040101
  5. NITROFURANTOIN [Concomitant]
  6. SULFAMETHOXAZOLE [Concomitant]
  7. ADVIL [IBUPROFEN] [Concomitant]
     Dosage: UNK UNK, PRN

REACTIONS (2)
  - GALLBLADDER INJURY [None]
  - CHOLELITHIASIS [None]
